FAERS Safety Report 8598412-8 (Version None)
Quarter: 2012Q3

REPORT INFORMATION
  Report Type: 
  Country: None (occurrence: None)
  Receive Date: 20120816
  Receipt Date: 20120808
  Transmission Date: 20120928
  Serious: Yes (Hospitalization, Other)
  Sender: FDA-Public Use
  Company Number: US-PFIZER INC-2012062039

PATIENT
  Age: 33 Year
  Sex: Male

DRUGS (4)
  1. DILANTIN KAPSEAL [Suspect]
     Dosage: 1100 MG, AT A TIME
     Route: 048
  2. DILANTIN KAPSEAL [Suspect]
     Indication: CONVULSION
     Dosage: 300 MG, 1X/DAY, AT BED TIME
     Route: 048
     Dates: start: 20100401, end: 20100412
  3. DILANTIN KAPSEAL [Suspect]
     Dosage: 100 MG, 3X/DAY, WITH MEALS
     Route: 048
     Dates: start: 20100413
  4. TEMAZEPAM [Concomitant]
     Dosage: 15 MG, 1X/DAY, AT BED TIME
     Route: 048
     Dates: start: 20100413

REACTIONS (1)
  - STEVENS-JOHNSON SYNDROME [None]
